FAERS Safety Report 10379301 (Version 1)
Quarter: 2014Q3

REPORT INFORMATION
  Report Type: Spontaneous
  Country: US (occurrence: US)
  Receive Date: 20140812
  Receipt Date: 20140812
  Transmission Date: 20150326
  Serious: Yes (Other)
  Sender: FDA-Public Use
  Company Number: US-BRISTOL-MYERS SQUIBB COMPANY-20980934

PATIENT
  Age: 17 Year
  Sex: Female

DRUGS (1)
  1. REYATAZ [Suspect]
     Active Substance: ATAZANAVIR SULFATE

REACTIONS (3)
  - Ocular icterus [Unknown]
  - Vomiting [Unknown]
  - Pregnancy [Unknown]
